FAERS Safety Report 22108375 (Version 1)
Quarter: 2023Q1

REPORT INFORMATION
  Report Type: Report from Study
  Country: CA (occurrence: CA)
  Receive Date: 20230317
  Receipt Date: 20230317
  Transmission Date: 20230417
  Serious: Yes (Other)
  Sender: FDA-Public Use
  Company Number: CA-002147023-NVSC2022CA253093

PATIENT
  Age: 34 Year
  Sex: Male

DRUGS (8)
  1. COSENTYX [Suspect]
     Active Substance: SECUKINUMAB
     Indication: Psoriasis
     Dosage: 300 MG, QMO (FIRST DOSE WAS SEP-23RD (2 SHOTS))-AT DOCTORS OFFICE
     Route: 058
     Dates: start: 20220923
  2. COSENTYX [Suspect]
     Active Substance: SECUKINUMAB
     Dosage: UNK (SECOND DOSE (2 SHOTS)) AT HOME
     Route: 065
     Dates: start: 20220930
  3. COSENTYX [Suspect]
     Active Substance: SECUKINUMAB
     Dosage: UNK, (THIRD DOSE (2 SHOTS))-AT HOME
     Route: 065
     Dates: start: 20221007
  4. COSENTYX [Suspect]
     Active Substance: SECUKINUMAB
     Dosage: UNK (FOURTH DOSE (2 SHOTS))-AT HOME
     Route: 065
     Dates: start: 20221014
  5. COSENTYX [Suspect]
     Active Substance: SECUKINUMAB
     Dosage: UNK, (FIFTH DOSE (2 SHOTS))-AT THE DOCTORS OFFICE
     Route: 065
     Dates: start: 20221021
  6. COSENTYX [Suspect]
     Active Substance: SECUKINUMAB
     Dosage: UNK, (SIXTH DOSE (2 SHOTS))-AT HOME
     Route: 065
     Dates: start: 20221104
  7. COSENTYX [Suspect]
     Active Substance: SECUKINUMAB
     Dosage: UNK, (LAST DOSE IN LATE JAN)
     Route: 065
     Dates: start: 202301
  8. SORIATANE [Concomitant]
     Active Substance: ACITRETIN
     Indication: Product used for unknown indication
     Dosage: UNK
     Route: 065

REACTIONS (6)
  - Hidradenitis [Not Recovered/Not Resolved]
  - Psoriasis [Unknown]
  - Musculoskeletal stiffness [Unknown]
  - Abdominal discomfort [Unknown]
  - Illness [Unknown]
  - Product use issue [Unknown]

NARRATIVE: CASE EVENT DATE: 20220923
